FAERS Safety Report 23566519 (Version 1)
Quarter: 2024Q1

REPORT INFORMATION
  Report Type: Spontaneous
  Country: US (occurrence: US)
  Receive Date: 20240226
  Receipt Date: 20240226
  Transmission Date: 20240409
  Serious: No
  Sender: FDA-Public Use
  Company Number: US-AMNEAL PHARMACEUTICALS-2023-AMRX-00464

PATIENT
  Age: 71 Year
  Sex: Male
  Weight: 108.86 kg

DRUGS (1)
  1. RYTARY [Suspect]
     Active Substance: CARBIDOPA\LEVODOPA
     Indication: Parkinson^s disease
     Dosage: 23.75/95 MG, 4 CAPSULES, 3 /DAY (MAY TAKE AN EXTRA 1-2 CAPSULES BY MOUTH EVERY DAY AS NEEDED)
     Route: 048
     Dates: start: 202212, end: 20230119

REACTIONS (4)
  - Balance disorder [Recovering/Resolving]
  - Tremor [Recovering/Resolving]
  - Drug ineffective [Unknown]
  - Product substitution issue [Unknown]

NARRATIVE: CASE EVENT DATE: 20221201
